FAERS Safety Report 24306654 (Version 2)
Quarter: 2024Q4

REPORT INFORMATION
  Report Type: Report from Study
  Country: IT (occurrence: IT)
  Receive Date: 20240911
  Receipt Date: 20241028
  Transmission Date: 20250115
  Serious: Yes (Hospitalization, Other)
  Sender: MYLAN
  Company Number: None

PATIENT
  Age: 14 Year
  Sex: Male

DRUGS (2)
  1. OLANZAPINE [Suspect]
     Active Substance: OLANZAPINE
     Indication: Product used for unknown indication
     Dosage: 30 MILLIGRAM
     Route: 048
     Dates: start: 20240807, end: 20240807
  2. OLANZAPINE [Concomitant]
     Active Substance: OLANZAPINE
     Indication: Behaviour disorder
     Dosage: 5 MILLIGRAM, BID (5 MG X2/DIE)
     Route: 065

REACTIONS (3)
  - Substance abuse [Unknown]
  - Drug abuse [Recovering/Resolving]
  - Abdominal pain [Recovering/Resolving]

NARRATIVE: CASE EVENT DATE: 20240807
